FAERS Safety Report 10240577 (Version 1)
Quarter: 2014Q2

REPORT INFORMATION
  Report Type: Spontaneous
  Country: US (occurrence: FR)
  Receive Date: 20140617
  Receipt Date: 20140617
  Transmission Date: 20141212
  Serious: Yes (Other)
  Sender: FDA-Public Use
  Company Number: 2014SP003227

PATIENT
  Age: 67 Year
  Sex: Male

DRUGS (7)
  1. FLUOROURACIL [Suspect]
     Indication: ADENOCARCINOMA OF COLON
     Route: 041
     Dates: start: 20140311, end: 20140313
  2. CALCIUM LEVOFOLINATE [Suspect]
     Indication: ADENOCARCINOMA OF COLON
     Route: 041
     Dates: start: 20140311, end: 20140311
  3. IRINOTECAN [Suspect]
     Indication: ADENOCARCINOMA OF COLON
     Route: 041
     Dates: start: 20140311, end: 20140311
  4. IRINOTECAN [Suspect]
     Indication: ADENOCARCINOMA OF COLON
     Dates: start: 20140401
  5. IRINOTECAN [Suspect]
     Indication: ADENOCARCINOMA OF COLON
     Dates: start: 20140415
  6. IRINOTECAN [Suspect]
     Indication: ADENOCARCINOMA OF COLON
     Dates: start: 20140429
  7. AFLIBERCEPT [Suspect]
     Indication: ADENOCARCINOMA OF COLON
     Route: 041
     Dates: start: 20140311, end: 20140311

REACTIONS (2)
  - Transient ischaemic attack [Recovered/Resolved]
  - Blindness unilateral [Unknown]
